FAERS Safety Report 7078239-9 (Version None)
Quarter: 2010Q4

REPORT INFORMATION
  Report Type: 
  Country: None (occurrence: None)
  Receive Date: 20101102
  Receipt Date: 20101022
  Transmission Date: 20110411
  Serious: Yes (Hospitalization)
  Sender: FDA-Public Use
  Company Number: FR-JNJFOC-20101006237

PATIENT
  Age: 62 Year
  Sex: Female

DRUGS (15)
  1. LEVOFLOXACIN [Suspect]
     Indication: BRONCHITIS
     Route: 048
  2. AMOXICILLIN AND CLAVULANATE POTASSIUM [Suspect]
     Indication: BRONCHITIS
     Route: 048
  3. METOJECT [Concomitant]
     Route: 065
  4. CORTANCYL [Concomitant]
     Route: 065
  5. SPECIAFOLDINE [Concomitant]
     Route: 065
  6. DEROXAT [Concomitant]
     Route: 065
  7. FLUDEX [Concomitant]
     Route: 065
  8. FLUDEX [Concomitant]
     Route: 065
  9. PERINDOPRIL ERBUMINE [Concomitant]
     Route: 065
  10. PERINDOPRIL ERBUMINE [Concomitant]
     Route: 065
  11. DIFFU K [Concomitant]
     Route: 065
  12. ESOMEPRAZOLE [Concomitant]
     Route: 065
  13. CACIT D3 [Concomitant]
     Route: 065
  14. ALFUZOSIN HCL [Concomitant]
     Route: 065
  15. RITUXIMAB [Concomitant]
     Route: 065

REACTIONS (5)
  - AGRANULOCYTOSIS [None]
  - COUGH [None]
  - DYSPNOEA [None]
  - LEUKOPENIA [None]
  - LYMPHOCYTE COUNT DECREASED [None]
